FAERS Safety Report 17898779 (Version 2)
Quarter: 2020Q3

REPORT INFORMATION
  Report Type: Spontaneous
  Country: US (occurrence: US)
  Receive Date: 20200615
  Receipt Date: 20200703
  Transmission Date: 20201103
  Serious: Yes (Death, Life-Threatening, Disabling, Other)
  Sender: FDA-Public Use
  Company Number: US-GILEAD-2020-0472460

PATIENT
  Age: 61 Year
  Sex: Male
  Weight: 84.1 kg

DRUGS (35)
  1. AMIODARONE [Concomitant]
     Active Substance: AMIODARONE
     Dosage: UNK
     Dates: start: 20200604, end: 20200609
  2. AZITHROMYCIN ANHYDROUS. [Concomitant]
     Active Substance: AZITHROMYCIN ANHYDROUS
     Dosage: UNK
     Dates: start: 20200601, end: 20200603
  3. LOVENOX [Concomitant]
     Active Substance: ENOXAPARIN SODIUM
     Dosage: 40 MG SQ BID
     Dates: start: 20200602, end: 20200605
  4. THIAMINE. [Concomitant]
     Active Substance: THIAMINE
  5. ASPIRIN [ACETYLSALICYLIC ACID] [Concomitant]
     Active Substance: ASPIRIN
  6. SUCCINYLCHOLINE [SUXAMETHONIUM CHLORIDE] [Concomitant]
     Active Substance: SUCCINYLCHOLINE
  7. REMDESIVIR. [Suspect]
     Active Substance: REMDESIVIR
     Dosage: 100 MG, QD
     Route: 042
     Dates: start: 20200603, end: 20200606
  8. ENOXAPARIN [Concomitant]
     Active Substance: ENOXAPARIN
  9. FENTANYL. [Concomitant]
     Active Substance: FENTANYL
  10. FOLIC ACID. [Concomitant]
     Active Substance: FOLIC ACID
  11. VECURONIUM [Concomitant]
     Active Substance: VECURONIUM BROMIDE
  12. IOHEXOL [Concomitant]
     Active Substance: IOHEXOL
  13. SCOPOLAMINE [HYOSCINE] [Concomitant]
     Active Substance: SCOPOLAMINE
  14. PLASMA [Concomitant]
     Active Substance: HUMAN PLASMA
     Dosage: UNK
     Dates: start: 20200606, end: 20200606
  15. NOREPINEPHRINE. [Concomitant]
     Active Substance: NOREPINEPHRINE
     Dosage: UNK
     Dates: start: 20200604, end: 20200607
  16. ZOSYN [Concomitant]
     Active Substance: PIPERACILLIN SODIUM\TAZOBACTAM SODIUM
     Dosage: UNK
     Dates: start: 20200601, end: 20200610
  17. LOVENOX [Concomitant]
     Active Substance: ENOXAPARIN SODIUM
     Dosage: 40 MG SQ BID
     Dates: start: 20200607, end: 20200610
  18. NORMAL SALINE [Concomitant]
     Active Substance: SODIUM CHLORIDE
  19. LACTATED RINGERS SOLUTION [Concomitant]
     Active Substance: CALCIUM CHLORIDE\POTASSIUM CHLORIDE\SODIUM CHLORIDE\SODIUM LACTATE
  20. REMDESIVIR. [Suspect]
     Active Substance: REMDESIVIR
     Indication: COVID-19
     Dosage: 200 MG, QD
     Route: 042
     Dates: start: 20200602, end: 20200602
  21. VANCOMYCIN [Concomitant]
     Active Substance: VANCOMYCIN
     Dosage: UNK
     Dates: start: 20200601, end: 20200603
  22. ALBUTEROL;IPRATROPIUM [Concomitant]
     Active Substance: ALBUTEROL\IPRATROPIUM
  23. PROPOFOL. [Concomitant]
     Active Substance: PROPOFOL
  24. FORMOTEROL [Concomitant]
     Active Substance: FORMOTEROL
  25. SODIUM BICARBONATE. [Concomitant]
     Active Substance: SODIUM BICARBONATE
  26. ACETAMINOPHEN. [Concomitant]
     Active Substance: ACETAMINOPHEN
  27. FAMOTIDINE. [Concomitant]
     Active Substance: FAMOTIDINE
  28. MORPHINE [Concomitant]
     Active Substance: MORPHINE
  29. ALBUTEROL [SALBUTAMOL] [Concomitant]
     Active Substance: ALBUTEROL
  30. FUROSEMIDE. [Concomitant]
     Active Substance: FUROSEMIDE
  31. LOVENOX [Concomitant]
     Active Substance: ENOXAPARIN SODIUM
     Dosage: 80 MG SQ BID
     Dates: start: 20200606, end: 20200607
  32. PIPERACILLIN/TAZOBACTAM [Concomitant]
     Active Substance: PIPERACILLIN SODIUM\TAZOBACTAM SODIUM
  33. POTASSIUM CHLORIDE. [Concomitant]
     Active Substance: POTASSIUM CHLORIDE
  34. POTASSIUM PHOSPHATE [POTASSIUM PHOSPHATE DIBASIC] [Concomitant]
  35. LORAZEPAM. [Concomitant]
     Active Substance: LORAZEPAM

REACTIONS (4)
  - Atrial flutter [Not Recovered/Not Resolved]
  - Pulmonary function test decreased [Not Recovered/Not Resolved]
  - Cerebrovascular accident [Not Recovered/Not Resolved]
  - Death [Fatal]

NARRATIVE: CASE EVENT DATE: 202006
